FAERS Safety Report 6601644-9 (Version None)
Quarter: 2010Q1

REPORT INFORMATION
  Report Type: 
  Country: None (occurrence: None)
  Receive Date: 20100225
  Receipt Date: 20100217
  Transmission Date: 20100710
  Serious: Yes (Death, Hospitalization, Other)
  Sender: FDA-Public Use
  Company Number: US-BAXTER-2010BH002156

PATIENT
  Age: 70 Year
  Sex: Male

DRUGS (1)
  1. DIANEAL [Suspect]
     Indication: PERITONEAL DIALYSIS
     Route: 033
     Dates: end: 20091207

REACTIONS (4)
  - CONFUSIONAL STATE [None]
  - DEATH [None]
  - MENTAL STATUS CHANGES [None]
  - PROSTATIC SPECIFIC ANTIGEN INCREASED [None]
